FAERS Safety Report 7028715-X (Version None)
Quarter: 2010Q3

REPORT INFORMATION
  Report Type: 
  Country: None (occurrence: None)
  Receive Date: 20100817
  Receipt Date: 20100802
  Transmission Date: 20110219
  Serious: Yes (Death, Life-Threatening)
  Sender: FDA-Public Use
  Company Number: OMX-2010-00056

PATIENT
  Age: 70 Year
  Sex: Male
  Weight: 83 kg

DRUGS (7)
  1. EVICEL [Suspect]
     Indication: VASCULAR OPERATION
     Dosage: QUANTITY USED '5CC'
  2. APPLICATOR [Suspect]
  3. HEPARIN [Concomitant]
  4. ROCEPHIN [Concomitant]
  5. PROPOFOL [Concomitant]
  6. INSULIN (INSULIN) [Concomitant]
  7. LASIX [Concomitant]

REACTIONS (9)
  - ATRIOVENTRICULAR BLOCK COMPLETE [None]
  - BRADYCARDIA [None]
  - CARDIO-RESPIRATORY ARREST [None]
  - HYPOTENSION [None]
  - NO THERAPEUTIC RESPONSE [None]
  - PNEUMONIA [None]
  - POST PROCEDURAL COMPLICATION [None]
  - PULMONARY HYPERTENSION [None]
  - UNRESPONSIVE TO STIMULI [None]
